FAERS Safety Report 8740359 (Version 2)
Quarter: 2013Q4

REPORT INFORMATION
  Report Type: Spontaneous
  Country: US (occurrence: US)
  Receive Date: 20120823
  Receipt Date: 20131101
  Transmission Date: 20140711
  Serious: Yes (Hospitalization, Disabling)
  Sender: FDA-Public Use
  Company Number: US-009507513-1208USA003367

PATIENT
  Sex: Male

DRUGS (1)
  1. INVANZ [Suspect]
     Indication: CELLULITIS
     Dosage: 1 G, QD
     Dates: end: 20120806

REACTIONS (2)
  - Hypersensitivity [Unknown]
  - Rash generalised [Unknown]
